FAERS Safety Report 9819392 (Version 1)
Quarter: 2014Q1

REPORT INFORMATION
  Report Type: Spontaneous
  Country: AU (occurrence: None)
  Receive Date: 20140113
  Receipt Date: 20140113
  Transmission Date: 20141002
  Serious: Yes (Other)
  Sender: FDA-Public Use
  Company Number: 2013000406

PATIENT
  Sex: Female

DRUGS (3)
  1. ACEON [Suspect]
     Indication: PRODUCT USED FOR UNKNOWN INDICATION
  2. PANAMAX (PARACETAMOL) [Concomitant]
  3. PROTAPHANE (INSULIN HUMAN INJECTION, ISOPHANE) [Concomitant]

REACTIONS (5)
  - Bronchospasm [None]
  - Diarrhoea [None]
  - Abdominal pain [None]
  - Nausea [None]
  - Angioedema [None]
